FAERS Safety Report 6415722-0 (Version None)
Quarter: 2009Q4

REPORT INFORMATION
  Report Type: 
  Country: None (occurrence: None)
  Receive Date: 20091027
  Receipt Date: 20091015
  Transmission Date: 20100525
  Serious: Yes (Other)
  Sender: FDA-Public Use
  Company Number: US-PFIZER INC-2009284922

PATIENT
  Sex: Female
  Weight: 56.699 kg

DRUGS (1)
  1. AZITHROMYCIN [Suspect]
     Indication: PHARYNGITIS
     Dosage: 500 MG, 1X/DAY
     Route: 048
     Dates: start: 20091002, end: 20091004

REACTIONS (4)
  - COLITIS [None]
  - INFECTION [None]
  - INFLAMMATION [None]
  - PAIN [None]
